FAERS Safety Report 4549378-9 (Version None)
Quarter: 2005Q1

REPORT INFORMATION
  Report Type: 
  Country: None (occurrence: None)
  Receive Date: 20050106
  Receipt Date: 20041222
  Transmission Date: 20050727
  Serious: Yes (Death, Other)
  Sender: FDA-Public Use
  Company Number: 200410402GDS

PATIENT
  Age: 78 Year
  Sex: Female

DRUGS (8)
  1. FLOCIPRIN(CIPROFLOXAIN HYDROCHLORIDE) [Suspect]
     Indication: BRONCHITIS CHRONIC
     Dosage: 500 MG, BID, ORAL
     Route: 048
     Dates: start: 20040109, end: 20040111
  2. AMIODARONE [Concomitant]
  3. FUROSEMIDE [Concomitant]
  4. LOSARTAN [Concomitant]
  5. COUMADIN [Concomitant]
  6. POTASSIUM CANRENOATE [Concomitant]
  7. KCL TAB [Concomitant]
  8. BAMIFYLLINE [Concomitant]

REACTIONS (7)
  - CONDITION AGGRAVATED [None]
  - DERMATITIS BULLOUS [None]
  - DISSEMINATED INTRAVASCULAR COAGULATION [None]
  - IATROGENIC INJURY [None]
  - RENAL FAILURE ACUTE [None]
  - THROMBOCYTOPENIA [None]
  - TOXIC EPIDERMAL NECROLYSIS [None]
